FAERS Safety Report 8034128-4 (Version None)
Quarter: 2012Q1

REPORT INFORMATION
  Report Type: 
  Country: None (occurrence: None)
  Receive Date: 20120110
  Receipt Date: 20111230
  Transmission Date: 20120608
  Serious: Yes (Death, Hospitalization)
  Sender: FDA-Public Use
  Company Number: US-ACTELION-A-US2011-59116

PATIENT

DRUGS (22)
  1. TIROSINT [Concomitant]
  2. ULTRAM [Concomitant]
  3. ZOFRAN [Concomitant]
  4. OXYGEN [Concomitant]
  5. COUMADIN [Concomitant]
  6. ATORVASTATIN [Concomitant]
  7. ADCIRCA [Concomitant]
  8. CELECOXIB [Concomitant]
  9. NEXIUM [Concomitant]
  10. BENADRYL [Concomitant]
  11. CENTRUM SILVER [Concomitant]
  12. EPOPROSTENOL SODIUM [Suspect]
     Indication: PULMONARY ARTERIAL HYPERTENSION
     Dosage: 16.5 NG/KG, PER MIN
     Route: 042
     Dates: start: 20101029, end: 20111230
  13. FLECAINIDE ACETATE [Concomitant]
  14. TOPROL-XL [Concomitant]
  15. LUNESTA [Concomitant]
  16. CALCIUM WITH VITAMIN D [Concomitant]
  17. FERROUS SULFATE TAB [Concomitant]
  18. ROXICET [Concomitant]
  19. OXYCONTIN [Concomitant]
  20. COLACE [Concomitant]
  21. EFFEXOR [Concomitant]
  22. CULTURELLE [Concomitant]

REACTIONS (4)
  - DYSPNOEA [None]
  - RIGHT VENTRICULAR DYSFUNCTION [None]
  - DEATH [None]
  - TACHYCARDIA [None]
